FAERS Safety Report 21801816 (Version 2)
Quarter: 2023Q1

REPORT INFORMATION
  Report Type: Report from Study
  Country: CN (occurrence: CN)
  Receive Date: 20221230
  Receipt Date: 20230301
  Transmission Date: 20230418
  Serious: Yes (Other)
  Sender: FDA-Public Use
  Company Number: CN-TAKEDA-2022TUS102413

PATIENT
  Age: 27 Year
  Sex: Female
  Weight: 101.4 kg

DRUGS (6)
  1. BRENTUXIMAB VEDOTIN [Suspect]
     Active Substance: BRENTUXIMAB VEDOTIN
     Indication: Primary mediastinal large B-cell lymphoma
     Dosage: 100 MILLIGRAM, Q3WEEKS
     Route: 041
     Dates: start: 20220223
  2. DEXAMETHASONE SODIUM PHOSPHATE [Suspect]
     Active Substance: DEXAMETHASONE SODIUM PHOSPHATE
     Indication: Lymphoma
     Dosage: 5 MILLIGRAM, QD
     Route: 042
     Dates: start: 20220322
  3. TISLELIZUMAB [Suspect]
     Active Substance: TISLELIZUMAB
     Indication: Lymphoma
     Dosage: 200 MILLIGRAM, QD
     Route: 042
     Dates: start: 20220322
  4. RIVAROXABAN [Concomitant]
     Active Substance: RIVAROXABAN
     Indication: Tumour thrombosis
     Dosage: 20 MILLIGRAM, QD
     Route: 048
  5. VITAMIN B1 [Concomitant]
     Active Substance: THIAMINE HYDROCHLORIDE
     Indication: Nervous system disorder
     Dosage: UNK, TID
     Route: 048
     Dates: start: 2022
  6. METHYLCOBALAMIN [Concomitant]
     Active Substance: METHYLCOBALAMIN
     Indication: Tumour thrombosis
     Dosage: 5 MILLIGRAM, TID
     Route: 048
     Dates: start: 2022

REACTIONS (3)
  - Diabetes mellitus [Not Recovered/Not Resolved]
  - Obesity [Not Recovered/Not Resolved]
  - Off label use [Unknown]

NARRATIVE: CASE EVENT DATE: 20220223
